FAERS Safety Report 12549890 (Version 2)
Quarter: 2016Q3

REPORT INFORMATION
  Report Type: Spontaneous
  Country: US (occurrence: US)
  Receive Date: 20160712
  Receipt Date: 20160817
  Transmission Date: 20161109
  Serious: Yes (Other)
  Sender: FDA-Public Use
  Company Number: US-SAOL THERAPEUTICS-2016SAO00119

PATIENT
  Age: 25 Year
  Sex: Male

DRUGS (6)
  1. ZOLOFT [Suspect]
     Active Substance: SERTRALINE HYDROCHLORIDE
     Dosage: UNK
  2. COLACE [Suspect]
     Active Substance: DOCUSATE SODIUM
     Dosage: UNK
  3. BACLOFEN. [Suspect]
     Active Substance: BACLOFEN
     Indication: MUSCLE SPASTICITY
     Dosage: 320 ?G, \DAY
     Route: 037
  4. LIORESAL [Suspect]
     Active Substance: BACLOFEN
     Indication: MUSCLE SPASTICITY
     Dosage: 664.7 ?G, \DAY
     Dates: start: 2008
  5. NUEDEXTA [Suspect]
     Active Substance: DEXTROMETHORPHAN HYDROBROMIDE\QUINIDINE SULFATE
     Dosage: UNK
  6. CLARITIN [Suspect]
     Active Substance: LORATADINE
     Dosage: UNK

REACTIONS (11)
  - Implant site swelling [Recovered/Resolved]
  - Muscle spasms [Recovered/Resolved]
  - Device computer issue [Recovered/Resolved]
  - Torticollis [Recovered/Resolved]
  - Device connection issue [Recovered/Resolved]
  - Implant site discharge [Recovered/Resolved]
  - Implant site extravasation [Recovered/Resolved]
  - Unevaluable event [Recovered/Resolved]
  - Cerebrospinal fluid leakage [Recovered/Resolved]
  - Implant site dehiscence [Recovered/Resolved]
  - Drug withdrawal syndrome [Recovered/Resolved]

NARRATIVE: CASE EVENT DATE: 201503
